FAERS Safety Report 10043827 (Version 1)
Quarter: 2014Q1

REPORT INFORMATION
  Report Type: Spontaneous
  Country: FR (occurrence: FR)
  Receive Date: 20140328
  Receipt Date: 20140328
  Transmission Date: 20141002
  Serious: Yes (Hospitalization)
  Sender: FDA-Public Use
  Company Number: FR-AMGEN-FRASP2014021167

PATIENT
  Age: 68 Year
  Sex: Male
  Weight: 84 kg

DRUGS (6)
  1. ARANESP [Suspect]
     Indication: RENAL FAILURE CHRONIC
     Dosage: 100 MUG, QMO
     Route: 065
  2. AMLOR [Concomitant]
  3. CELLCEPT                           /01275102/ [Concomitant]
  4. PROGRAF [Concomitant]
  5. RIFADINE                           /00146901/ [Concomitant]
  6. LEVOFLOXACINE                      /01278901/ [Concomitant]

REACTIONS (5)
  - Pyrexia [Unknown]
  - Petechiae [Unknown]
  - Purpura [Unknown]
  - Ecchymosis [Unknown]
  - Haemoglobin abnormal [Unknown]
